FAERS Safety Report 10469001 (Version 3)
Quarter: 2015Q2

REPORT INFORMATION
  Report Type: Spontaneous
  Country: US (occurrence: US)
  Receive Date: 20140923
  Receipt Date: 20150626
  Transmission Date: 20150821
  Serious: Yes (Death)
  Sender: FDA-Public Use
  Company Number: US-UCBSA-2014012214

PATIENT
  Age: 25 Year
  Sex: Male
  Weight: 85.7 kg

DRUGS (1)
  1. KEPPRA XR [Suspect]
     Active Substance: LEVETIRACETAM
     Indication: SEIZURE
     Dosage: 750 MG, ONCE DAILY (QD) (AT BEDTIME)
     Route: 048
     Dates: start: 20090917, end: 20140429

REACTIONS (1)
  - Death [Fatal]

NARRATIVE: CASE EVENT DATE: 20140429
